FAERS Safety Report 25893466 (Version 1)
Quarter: 2025Q4

REPORT INFORMATION
  Report Type: Spontaneous
  Country: US (occurrence: US)
  Receive Date: 20251008
  Receipt Date: 20251008
  Transmission Date: 20260118
  Serious: No
  Sender: BRISTOL-MYERS SQUIBB COMPANY
  Company Number: US-BRISTOL-MYERS SQUIBB COMPANY-2025-137116

PATIENT
  Age: 78 Year
  Sex: Male

DRUGS (2)
  1. POMALYST [Suspect]
     Active Substance: POMALIDOMIDE
     Indication: Plasma cell myeloma
     Dates: start: 202509
  2. POMALYST [Suspect]
     Active Substance: POMALIDOMIDE
     Dosage: EVERY OTHER DAY FOR 21 DAYS ON AND 7 DAYS?OFF
     Dates: start: 202509

REACTIONS (2)
  - Fatigue [Recovering/Resolving]
  - Dizziness [Recovering/Resolving]
